FAERS Safety Report 16800061 (Version 1)
Quarter: 2019Q4

REPORT INFORMATION
  Report Type: Spontaneous
  Country: US (occurrence: US)
  Receive Date: 20190912
  Receipt Date: 20190912
  Transmission Date: 20200122
  Serious: Yes (Other)
  Sender: FDA-Public Use
  Company Number: None

PATIENT
  Age: 54 Year
  Sex: Male
  Weight: 83.25 kg

DRUGS (1)
  1. CVS HEALTH EXTRA STRENGTH LUBRICANT GEL DROPS [CARBOXYMETHYLCELLULOSE SODIUM] [Suspect]
     Active Substance: CARBOXYMETHYLCELLULOSE SODIUM
     Indication: DRY EYE
     Dosage: ?          QUANTITY:2 DROP(S);?
     Route: 047
     Dates: end: 20181107

REACTIONS (4)
  - Product sterility lacking [None]
  - Reaction to preservatives [None]
  - Episcleritis [None]
  - Recalled product administered [None]

NARRATIVE: CASE EVENT DATE: 20181107
